FAERS Safety Report 9755416 (Version 1)
Quarter: 2013Q4

REPORT INFORMATION
  Report Type: Spontaneous
  Country: US (occurrence: US)
  Receive Date: 20131213
  Receipt Date: 20131213
  Transmission Date: 20140711
  Serious: No
  Sender: FDA-Public Use
  Company Number: US-GLAXOSMITHKLINE-A1017821A

PATIENT
  Age: 56 Year
  Sex: Female

DRUGS (3)
  1. NICODERM CQ CLEAR 21MG [Suspect]
     Indication: EX-TOBACCO USER
     Dates: start: 20130323, end: 20130327
  2. EQUATE NTS 21MG, CLEAR [Suspect]
     Indication: PRODUCT USED FOR UNKNOWN INDICATION
     Dates: end: 20130322
  3. NICORETTE OTC, UNSPECIFIED [Suspect]
     Indication: PRODUCT USED FOR UNKNOWN INDICATION

REACTIONS (14)
  - Application site irritation [Not Recovered/Not Resolved]
  - Application site exfoliation [Not Recovered/Not Resolved]
  - Application site discolouration [Not Recovered/Not Resolved]
  - Hypersensitivity [Not Recovered/Not Resolved]
  - Application site pain [Not Recovered/Not Resolved]
  - Application site reaction [Not Recovered/Not Resolved]
  - Drug ineffective [Unknown]
  - Application site exfoliation [Recovered/Resolved]
  - Application site vesicles [Not Recovered/Not Resolved]
  - Stomatitis [Recovered/Resolved]
  - Stomatitis [Recovered/Resolved]
  - Application site bruise [Not Recovered/Not Resolved]
  - Application site erythema [Not Recovered/Not Resolved]
  - Scar [Recovered/Resolved]
